FAERS Safety Report 21978231 (Version 1)
Quarter: 2023Q1

REPORT INFORMATION
  Report Type: Spontaneous
  Country: US (occurrence: None)
  Receive Date: 20230208
  Receipt Date: 20230208
  Transmission Date: 20230418
  Serious: No
  Sender: FDA-Public Use
  Company Number: None

PATIENT
  Age: 70 Year
  Sex: Male

DRUGS (2)
  1. ENBREL [Suspect]
     Active Substance: ETANERCEPT
     Indication: Rheumatoid arthritis
     Dosage: INJECT 50MG SUBCUTANEOUSLY ONCE WEEKLY USING THE AUTO TOUCH DEVICE AS DIRECTED
     Route: 058
     Dates: start: 202301
  2. MOUNJARO [Suspect]
     Active Substance: TIRZEPATIDE

REACTIONS (1)
  - Localised infection [None]
